FAERS Safety Report 5930834-3 (Version None)
Quarter: 2008Q4

REPORT INFORMATION
  Report Type: 
  Country: None (occurrence: None)
  Receive Date: 20081002
  Receipt Date: 20080617
  Transmission Date: 20090506
  Serious: Yes (Other)
  Sender: FDA-Public Use
  Company Number: 2008-0016954

PATIENT
  Age: 5 Decade
  Sex: Male

DRUGS (4)
  1. TRUVADA [Suspect]
     Indication: HIV INFECTION
     Dates: start: 20070101, end: 20080101
  2. REYATAZ [Concomitant]
  3. RITONAVIR (RITONAVIR) [Concomitant]
  4. EPZICOM(ABACAVIR W/LAMIVUDINE) [Concomitant]

REACTIONS (1)
  - BLOOD CREATININE INCREASED [None]
